FAERS Safety Report 21746398 (Version 2)
Quarter: 2023Q1

REPORT INFORMATION
  Report Type: Spontaneous
  Country: DE (occurrence: DE)
  Receive Date: 20221219
  Receipt Date: 20230131
  Transmission Date: 20230417
  Serious: Yes (Hospitalization, Other)
  Sender: FDA-Public Use
  Company Number: DE-002147023-NVSC2022DE292015

PATIENT
  Sex: Male

DRUGS (3)
  1. GILENYA [Suspect]
     Active Substance: FINGOLIMOD HYDROCHLORIDE
     Indication: Multiple sclerosis
     Dosage: 1 DOSAGE FORM
     Route: 050
     Dates: start: 2012
  2. GILENYA [Suspect]
     Active Substance: FINGOLIMOD HYDROCHLORIDE
     Dosage: 1 DOSAGE FORM, QOD
     Route: 050
     Dates: start: 2021, end: 20221209
  3. IBUPROFEN [Concomitant]
     Active Substance: IBUPROFEN
     Indication: Product used for unknown indication
     Dosage: UNK, PRN
     Route: 065

REACTIONS (11)
  - Transaminases increased [Recovering/Resolving]
  - Multiple sclerosis relapse [Recovered/Resolved]
  - Lymphocyte count decreased [Recovering/Resolving]
  - Muscle spasticity [Unknown]
  - Muscle spasms [Unknown]
  - Neutrophil count increased [Recovering/Resolving]
  - Pleural effusion [Unknown]
  - Hepatic cyst [Unknown]
  - Epstein-Barr virus antigen positive [Unknown]
  - Varicella virus test positive [Unknown]
  - Off label use [Recovered/Resolved]

NARRATIVE: CASE EVENT DATE: 20120101
